FAERS Safety Report 17571379 (Version 1)
Quarter: 2020Q1

REPORT INFORMATION
  Report Type: Spontaneous
  Country: FR (occurrence: FR)
  Receive Date: 20200323
  Receipt Date: 20200323
  Transmission Date: 20200409
  Serious: Yes (Life-Threatening, Other)
  Sender: FDA-Public Use
  Company Number: FR-PFIZER INC-2020120238

PATIENT
  Age: 64 Year
  Sex: Male
  Weight: 94 kg

DRUGS (15)
  1. KARDEGIC [Concomitant]
     Active Substance: ASPIRIN DL-LYSINE
     Dosage: UNK
  2. CALCIUM FOLINATE [Suspect]
     Active Substance: LEUCOVORIN CALCIUM
     Indication: COLORECTAL CANCER METASTATIC
     Dosage: UNK
     Dates: end: 20140122
  3. IRINOTECAN HCL [Suspect]
     Active Substance: IRINOTECAN HYDROCHLORIDE
     Indication: COLORECTAL CANCER METASTATIC
     Dosage: UNK
     Dates: end: 20140122
  4. CARDENSIEL [Concomitant]
     Active Substance: BISOPROLOL FUMARATE
     Dosage: UNK
  5. VERATRAN [Concomitant]
     Active Substance: CLOTIAZEPAM
     Indication: ANXIETY
     Dosage: 1 DF, UNK
  6. FLUOXETINE [Concomitant]
     Active Substance: FLUOXETINE HYDROCHLORIDE
     Dosage: UNK
  7. COVERSYL [PERINDOPRIL ARGININE] [Concomitant]
     Active Substance: PERINDOPRIL ARGININE
     Dosage: UNK
  8. LIRAGLUTIDE [Concomitant]
     Active Substance: LIRAGLUTIDE
     Dosage: UNK
  9. FLUOROURACIL. [Suspect]
     Active Substance: FLUOROURACIL
     Indication: COLORECTAL CANCER METASTATIC
     Dosage: UNK
     Dates: end: 20140122
  10. ERBITUX [Suspect]
     Active Substance: CETUXIMAB
     Indication: COLORECTAL CANCER METASTATIC
     Dosage: 1 G, UNK
     Route: 042
     Dates: start: 20140122, end: 20140122
  11. FUROSEMIDE. [Concomitant]
     Active Substance: FUROSEMIDE
     Dosage: UNK
  12. POLARAMINE [Concomitant]
     Active Substance: DEXCHLORPHENIRAMINE MALEATE
     Indication: PREMEDICATION
     Dosage: 5 MG, UNK
     Route: 042
     Dates: start: 20140122, end: 20140122
  13. SIMVASTATIN. [Concomitant]
     Active Substance: SIMVASTATIN
     Dosage: UNK
  14. METFORMINE [METFORMIN HYDROCHLORIDE] [Concomitant]
     Active Substance: METFORMIN HYDROCHLORIDE
     Dosage: UNK
  15. HEMI-DAONIL [Concomitant]
     Active Substance: GLYBURIDE
     Dosage: UNK

REACTIONS (2)
  - Anaphylactic shock [Recovered/Resolved]
  - Haemoglobin decreased [Unknown]

NARRATIVE: CASE EVENT DATE: 20140122
